FAERS Safety Report 4429619-9 (Version None)
Quarter: 2004Q3

REPORT INFORMATION
  Report Type: 
  Country: None (occurrence: None)
  Receive Date: 20040819
  Receipt Date: 20040818
  Transmission Date: 20050211
  Serious: Yes (Other)
  Sender: FDA-Public Use
  Company Number: C04-T-125

PATIENT
  Age: 72 Year
  Sex: Female
  Weight: 58.0604 kg

DRUGS (1)
  1. BUTALBITAL ACETAMINOPHEN + CAFFEINE, 50/325/40MG TABS [Suspect]
     Indication: HEADACHE
     Dates: start: 20040415

REACTIONS (1)
  - DRUG INEFFECTIVE [None]
